FAERS Safety Report 7622038-3 (Version None)
Quarter: 2011Q3

REPORT INFORMATION
  Report Type: 
  Country: None (occurrence: None)
  Receive Date: 20110720
  Receipt Date: 20101227
  Transmission Date: 20111222
  Serious: Yes (Hospitalization)
  Sender: FDA-Public Use
  Company Number: US-BAYER-201016271NA

PATIENT
  Age: 19 Year
  Sex: Female
  Weight: 55 kg

DRUGS (8)
  1. IBUPROFEN [Concomitant]
  2. YAZ [Suspect]
     Indication: CONTRACEPTION
     Route: 048
     Dates: start: 20080201, end: 20090915
  3. SODIUM CHLORIDE [Concomitant]
  4. PROTONIX [Concomitant]
  5. PRILOSEC [Concomitant]
  6. MORPHINE [Concomitant]
  7. PROTONIX [Concomitant]
  8. ACETAMINOPHEN [Concomitant]

REACTIONS (6)
  - NAUSEA [None]
  - VOMITING [None]
  - GALLBLADDER CHOLESTEROLOSIS [None]
  - BILIARY DYSKINESIA [None]
  - CHOLECYSTITIS CHRONIC [None]
  - ABDOMINAL PAIN [None]
